FAERS Safety Report 9764266 (Version 3)
Quarter: 2014Q2

REPORT INFORMATION
  Report Type: Spontaneous
  Country: BR (occurrence: BR)
  Receive Date: 20131217
  Receipt Date: 20140520
  Transmission Date: 20141212
  Serious: Yes (Life-Threatening, Other)
  Sender: FDA-Public Use
  Company Number: BR-ROCHE-1320892

PATIENT
  Age: 51 Year
  Sex: Female

DRUGS (3)
  1. AVASTIN [Suspect]
     Indication: LUNG ADENOCARCINOMA
     Route: 065
  2. MAREVAN [Concomitant]
  3. ALIMTA [Concomitant]
     Indication: LUNG ADENOCARCINOMA

REACTIONS (3)
  - Therapy responder [Unknown]
  - Pneumonia [Unknown]
  - Mucosal inflammation [Unknown]
